FAERS Safety Report 6017110-8 (Version None)
Quarter: 2008Q4

REPORT INFORMATION
  Report Type: 
  Country: None (occurrence: None)
  Receive Date: 20081223
  Receipt Date: 20081217
  Transmission Date: 20090506
  Serious: Yes (Hospitalization)
  Sender: FDA-Public Use
  Company Number: AU-WYE-H07378708

PATIENT
  Age: 25 Year
  Sex: Male

DRUGS (3)
  1. VENLAFAXINE HYDROCHLORIDE [Suspect]
     Dosage: 90X150 MG (13.5 G) (OVERDOSE AMOUNT)
     Route: 048
  2. ETHANOL [Suspect]
     Dosage: ^SOME ALCOHOL^ (OVERDOSE)
     Route: 048
  3. DOSULEPIN [Suspect]
     Dosage: 30X25 MG (750 MG) (OVERDOSE AMOUNT)

REACTIONS (9)
  - ACIDOSIS [None]
  - CLONUS [None]
  - DRUG TOXICITY [None]
  - ELECTROCARDIOGRAM QRS COMPLEX PROLONGED [None]
  - GRAND MAL CONVULSION [None]
  - HYPERREFLEXIA [None]
  - ILEUS [None]
  - MYDRIASIS [None]
  - OVERDOSE [None]
